FAERS Safety Report 12521371 (Version 1)
Quarter: 2016Q3

REPORT INFORMATION
  Report Type: Spontaneous
  Country: US (occurrence: US)
  Receive Date: 20160701
  Receipt Date: 20160701
  Transmission Date: 20161109
  Serious: Yes (Hospitalization, Other)
  Sender: FDA-Public Use
  Company Number: US-BRISTOL-MYERS SQUIBB COMPANY-BMS-2016-052470

PATIENT
  Age: 52 Year
  Sex: Female

DRUGS (1)
  1. OPDIVO [Suspect]
     Active Substance: NIVOLUMAB
     Indication: OVARIAN CANCER
     Dosage: 5 UNK, UNK
     Route: 042
     Dates: start: 2016

REACTIONS (5)
  - Generalised oedema [Unknown]
  - Rash [Unknown]
  - Paracentesis [Unknown]
  - Product use issue [Unknown]
  - Ascites [Unknown]

NARRATIVE: CASE EVENT DATE: 20160616
